FAERS Safety Report 5394174-6 (Version None)
Quarter: 2007Q3

REPORT INFORMATION
  Report Type: 
  Country: None (occurrence: None)
  Receive Date: 20070723
  Receipt Date: 20070717
  Transmission Date: 20080115
  Serious: Yes (Other)
  Sender: FDA-Public Use
  Company Number: AU-ASTRAZENECA-2007AP04297

PATIENT
  Age: 79 Year
  Sex: Female
  Weight: 55 kg

DRUGS (4)
  1. CRESTOR [Suspect]
     Indication: METABOLIC DISORDER
     Route: 048
     Dates: start: 20061212, end: 20061214
  2. AVAPRO [Concomitant]
  3. XALATAN [Concomitant]
  4. GRISEOFULVIN [Concomitant]

REACTIONS (3)
  - GAIT DISTURBANCE [None]
  - LETHARGY [None]
  - MUSCLE SPASMS [None]
